FAERS Safety Report 4302479-2 (Version None)
Quarter: 2004Q1

REPORT INFORMATION
  Report Type: 
  Country: None (occurrence: None)
  Receive Date: 20040218
  Receipt Date: 20030502
  Transmission Date: 20041129
  Serious: Yes (Hospitalization, Other)
  Sender: FDA-Public Use
  Company Number: PHEH2003US02005

PATIENT
  Age: 79 Year
  Sex: Female
  Weight: 68.9 kg

DRUGS (2)
  1. DIOVAN [Suspect]
     Indication: HYPERTENSION
     Dosage: 160 MG, QD, ORAL
     Route: 048
     Dates: start: 20010401, end: 20021001
  2. VIOXX [Concomitant]

REACTIONS (1)
  - RENAL FAILURE ACUTE [None]
